FAERS Safety Report 5688964-X (Version None)
Quarter: 2008Q1

REPORT INFORMATION
  Report Type: 
  Country: None (occurrence: None)
  Receive Date: 20080331
  Receipt Date: 20080303
  Transmission Date: 20080703
  Serious: Yes (Hospitalization)
  Sender: FDA-Public Use
  Company Number: IT-BAYER-200814351GPV

PATIENT
  Age: 74 Year
  Sex: Female

DRUGS (1)
  1. ULTRAVIST 370 [Suspect]
     Indication: COMPUTERISED TOMOGRAM
     Route: 042
     Dates: start: 20080206, end: 20080206

REACTIONS (6)
  - AMIMIA [None]
  - EYE IRRITATION [None]
  - HYPERGLYCAEMIA [None]
  - SENSATION OF HEAVINESS [None]
  - TREMOR [None]
  - UNRESPONSIVE TO STIMULI [None]
